FAERS Safety Report 5521481-6 (Version None)
Quarter: 2007Q4

REPORT INFORMATION
  Report Type: 
  Country: None (occurrence: None)
  Receive Date: 20071119
  Receipt Date: 20071108
  Transmission Date: 20080405
  Serious: Yes (Other)
  Sender: FDA-Public Use
  Company Number: CN-PFIZER INC-2007091020

PATIENT

DRUGS (1)
  1. SOLU-MEDROL [Suspect]
     Indication: LUPUS ENCEPHALITIS
     Route: 042
     Dates: start: 20071001, end: 20071001

REACTIONS (1)
  - NERVOUS SYSTEM DISORDER [None]
